FAERS Safety Report 8270584-4 (Version None)
Quarter: 2012Q2

REPORT INFORMATION
  Report Type: 
  Country: None (occurrence: None)
  Receive Date: 20120410
  Receipt Date: 20120404
  Transmission Date: 20120825
  Serious: Yes (Death, Hospitalization)
  Sender: FDA-Public Use
  Company Number: US-CELGENEUS-163-21880-12022080

PATIENT
  Sex: Female

DRUGS (9)
  1. SINGULAIR [Concomitant]
     Route: 065
  2. CLONIDINE HCL [Concomitant]
     Route: 065
  3. REVLIMID [Suspect]
     Dosage: 5 MILLIGRAM
     Route: 048
     Dates: start: 20120124
  4. METFORMIN HCL [Concomitant]
     Route: 065
  5. DEXAMETHASONE [Concomitant]
     Route: 065
  6. ZOMETA [Concomitant]
     Route: 065
  7. GLIPIZIDE [Concomitant]
     Route: 065
  8. MECLIZINE HCL [Concomitant]
     Route: 065
  9. ALBUTEROL SULFATE [Concomitant]
     Route: 065

REACTIONS (5)
  - WHITE BLOOD CELL COUNT DECREASED [None]
  - DEATH [None]
  - RED BLOOD CELL COUNT DECREASED [None]
  - HALLUCINATION [None]
  - FULL BLOOD COUNT DECREASED [None]
